FAERS Safety Report 5235253-3 (Version None)
Quarter: 2007Q1

REPORT INFORMATION
  Report Type: 
  Country: None (occurrence: None)
  Receive Date: 20070212
  Receipt Date: 20070205
  Transmission Date: 20070707
  Serious: Yes (Hospitalization, Other)
  Sender: FDA-Public Use
  Company Number: US-ELI_LILLY_AND_COMPANY-US200602000834

PATIENT
  Age: 44 Year
  Sex: Male
  Weight: 133.79 kg

DRUGS (9)
  1. METOPROLOL TARTRATE [Concomitant]
     Route: 048
  2. CHLORPROMAZINE [Concomitant]
     Dates: start: 19960101, end: 19970101
  3. ZIPRASIDONE HCL [Concomitant]
     Dates: start: 20010101, end: 20010101
  4. PROZAC [Concomitant]
     Dosage: 40 MG, DAILY (1/D)
     Route: 048
     Dates: start: 20030508
  5. ZOCOR [Concomitant]
     Route: 048
  6. PRAVACHOL [Concomitant]
  7. RITALIN [Concomitant]
     Route: 048
     Dates: start: 20030707, end: 20030101
  8. ZYPREXA [Suspect]
     Indication: SCHIZOAFFECTIVE DISORDER
     Dosage: 7.5 MG, UNK
     Route: 048
     Dates: start: 19960101, end: 20050801
  9. ZYPREXA [Suspect]
     Route: 048
     Dates: start: 20060114

REACTIONS (6)
  - BLOOD PRESSURE INCREASED [None]
  - DIABETES MELLITUS NON-INSULIN-DEPENDENT [None]
  - GLUCOSE TOLERANCE IMPAIRED [None]
  - METABOLIC SYNDROME [None]
  - MYOCARDIAL INFARCTION [None]
  - WEIGHT INCREASED [None]
